FAERS Safety Report 6402630-4 (Version None)
Quarter: 2009Q4

REPORT INFORMATION
  Report Type: 
  Country: None (occurrence: None)
  Receive Date: 20091009
  Receipt Date: 20090930
  Transmission Date: 20100525
  Serious: Yes (Hospitalization, Other)
  Sender: FDA-Public Use
  Company Number: ADR34732009

PATIENT
  Sex: Male

DRUGS (2)
  1. CIPROFLOXACIN [Suspect]
     Dosage: 750MG ORAL
     Route: 048
     Dates: start: 20050601, end: 20050603
  2. METRONIDAZOLE [Concomitant]

REACTIONS (1)
  - COLITIS ULCERATIVE [None]
